FAERS Safety Report 8809346 (Version 3)
Quarter: 2012Q4

REPORT INFORMATION
  Report Type: 
  Country: US (occurrence: US)
  Receive Date: 20120926
  Receipt Date: 20121107
  Transmission Date: 20130627
  Serious: No
  Sender: FDA-Public Use
  Company Number: US-PFIZER INC-2012237515

PATIENT
  Age: 72 Year
  Sex: Female
  Weight: 54.42 kg

DRUGS (9)
  1. LYRICA [Suspect]
     Indication: JOINT PAIN
     Dosage: 50 mg, 2x/day
     Route: 048
  2. LYRICA [Suspect]
     Indication: PAIN IN ARM
  3. LYRICA [Suspect]
     Indication: BACK PAIN
  4. LASIX [Concomitant]
     Indication: SWELLING OF LEGS
     Dosage: 40 mg, daily
     Route: 048
  5. LASIX [Concomitant]
     Indication: WATER RETENTION
  6. SYNTHROID [Concomitant]
     Indication: THYROID DISORDER
     Dosage: 50 ug, daily
     Route: 048
  7. CELEBREX [Concomitant]
     Indication: JOINT PAIN
     Dosage: 200 mg, daily
     Route: 048
  8. CELEBREX [Concomitant]
     Indication: PAIN IN ARM
  9. CELEBREX [Concomitant]
     Indication: BACK PAIN

REACTIONS (3)
  - Alopecia [Not Recovered/Not Resolved]
  - Weight increased [Unknown]
  - Abdominal pain [Unknown]
